FAERS Safety Report 5141449-1 (Version None)
Quarter: 2006Q4

REPORT INFORMATION
  Report Type: 
  Country: None (occurrence: None)
  Receive Date: 20061030
  Receipt Date: 20061030
  Transmission Date: 20070319
  Serious: Yes (Death)
  Sender: FDA-Public Use
  Company Number: None

PATIENT
  Age: 36 Year
  Sex: Female
  Weight: 56.6996 kg

DRUGS (2)
  1. FENTANYL [Suspect]
     Indication: ABDOMINOPLASTY
     Dosage: 100 MICROGRAMS TRANSDERMAL
     Route: 062
     Dates: start: 20051114, end: 20051116
  2. FENTANYL [Suspect]
     Indication: SURGERY
     Dosage: 100 MICROGRAMS TRANSDERMAL
     Route: 062
     Dates: start: 20051114, end: 20051116

REACTIONS (1)
  - POST PROCEDURAL COMPLICATION [None]
